FAERS Safety Report 5608027-9 (Version None)
Quarter: 2008Q1

REPORT INFORMATION
  Report Type: 
  Country: None (occurrence: None)
  Receive Date: 20080130
  Receipt Date: 20080123
  Transmission Date: 20080703
  Serious: Yes (Other)
  Sender: FDA-Public Use
  Company Number: FR-SANOFI-SYNTHELABO-A02200800316

PATIENT
  Age: 47 Year
  Sex: Female

DRUGS (1)
  1. PLAVIX [Suspect]
     Indication: EMBOLISM
     Dosage: UNK
     Route: 048

REACTIONS (2)
  - ABORTION SPONTANEOUS [None]
  - DRUG EXPOSURE DURING PREGNANCY [None]
